FAERS Safety Report 6225971-2 (Version None)
Quarter: 2009Q2

REPORT INFORMATION
  Report Type: 
  Country: None (occurrence: None)
  Receive Date: 20090612
  Receipt Date: 20090506
  Transmission Date: 20091009
  Serious: No
  Sender: FDA-Public Use
  Company Number: US-ABBOTT-09P-163-0571824-00

PATIENT
  Sex: Female
  Weight: 118.04 kg

DRUGS (13)
  1. HUMIRA [Suspect]
     Indication: CROHN'S DISEASE
     Dosage: (160 MG  DAY 1)
     Dates: start: 20081212, end: 20081212
  2. HUMIRA [Suspect]
     Dosage: (80 MG DAY 15)
  3. HUMIRA [Suspect]
     Dosage: DAY 29
  4. HUMIRA [Suspect]
     Dates: start: 20090427
  5. DIOVAN [Concomitant]
     Indication: DRUG USE FOR UNKNOWN INDICATION
     Route: 048
  6. PRILOSEC [Concomitant]
     Indication: DRUG USE FOR UNKNOWN INDICATION
     Dosage: 1-2 CAPSULES DAILY AS NEEDED
  7. XANAX [Concomitant]
     Indication: DRUG USE FOR UNKNOWN INDICATION
     Route: 048
  8. ESTRADIOL [Concomitant]
     Indication: DRUG USE FOR UNKNOWN INDICATION
     Dosage: CHANGE WEEKLY
  9. VALTREX [Concomitant]
     Indication: DRUG USE FOR UNKNOWN INDICATION
     Route: 048
  10. LOMOTIL [Concomitant]
     Indication: DRUG USE FOR UNKNOWN INDICATION
     Dosage: DAILY AS NEEDED
     Route: 048
  11. ASACOL [Concomitant]
     Indication: DRUG USE FOR UNKNOWN INDICATION
     Dosage: TWO, TID BEFORE MEALS
     Route: 048
  12. RESTASIS [Concomitant]
     Indication: EYE DISORDER
  13. TRAMADOL HCL [Concomitant]
     Indication: DRUG USE FOR UNKNOWN INDICATION
     Dosage: DAILY AS NEEDED
     Route: 048

REACTIONS (3)
  - EAR PAIN [None]
  - OROPHARYNGEAL PAIN [None]
  - UPPER RESPIRATORY TRACT INFECTION [None]
